FAERS Safety Report 15108244 (Version 3)
Quarter: 2018Q3

REPORT INFORMATION
  Report Type: Report from Study
  Country: None (occurrence: US)
  Receive Date: 20180705
  Receipt Date: 20180821
  Transmission Date: 20181010
  Serious: Yes (Life-Threatening, Other)
  Sender: FDA-Public Use
  Company Number: US-ABBVIE-18K-163-2405946-00

PATIENT
  Age: 72 Year
  Sex: Female
  Weight: 72.64 kg

DRUGS (1)
  1. HUMIRA [Suspect]
     Active Substance: ADALIMUMAB
     Indication: PSORIATIC ARTHROPATHY
     Route: 058
     Dates: start: 2016

REACTIONS (5)
  - Pain [Unknown]
  - Hepatic cancer [Not Recovered/Not Resolved]
  - Bile duct adenocarcinoma [Not Recovered/Not Resolved]
  - Dysstasia [Unknown]
  - Malaise [Unknown]

NARRATIVE: CASE EVENT DATE: 201805
